FAERS Safety Report 9302821 (Version 1)
Quarter: 2013Q2

REPORT INFORMATION
  Report Type: Spontaneous
  Country: FR (occurrence: None)
  Receive Date: 20130516
  Receipt Date: 20130516
  Transmission Date: 20140414
  Serious: Yes (Hospitalization)
  Sender: FDA-Public Use
  Company Number: 2012000308

PATIENT
  Age: 60 Year
  Sex: Female

DRUGS (6)
  1. ACEON [Suspect]
     Route: 048
  2. JANUMET [Suspect]
     Route: 048
  3. FENOFIBRATE [Suspect]
     Route: 048
  4. GLIMEPIRIDE (GLIMEPIRIDE) [Concomitant]
  5. ESIDREX (HYDROCHLOROTHIAZIDE) [Concomitant]
  6. SIMVASTATIN E (SIMVASTATIN) [Concomitant]

REACTIONS (3)
  - Hepatomegaly [None]
  - Cholelithiasis [None]
  - Pancreatitis acute [None]
